FAERS Safety Report 21924649 (Version 1)
Quarter: 2023Q1

REPORT INFORMATION
  Report Type: Spontaneous
  Country: FR (occurrence: FR)
  Receive Date: 20230130
  Receipt Date: 20230130
  Transmission Date: 20230418
  Serious: Yes (Other)
  Sender: FDA-Public Use
  Company Number: FR-AMGEN-FRASP2023014027

PATIENT
  Age: 36 Year
  Sex: Female

DRUGS (4)
  1. PANITUMUMAB [Suspect]
     Active Substance: PANITUMUMAB
     Indication: Endometrial cancer
     Dosage: UNK
     Route: 065
  2. PANITUMUMAB [Suspect]
     Active Substance: PANITUMUMAB
     Indication: Off label use
  3. COBIMETINIB [Suspect]
     Active Substance: COBIMETINIB
     Indication: Endometrial cancer
     Dosage: UNK
     Route: 065
  4. COBIMETINIB [Suspect]
     Active Substance: COBIMETINIB
     Indication: Off label use

REACTIONS (4)
  - Metastases to liver [Unknown]
  - Metastases to peritoneum [Unknown]
  - Skin toxicity [Unknown]
  - Off label use [Unknown]
